FAERS Safety Report 18752759 (Version 1)
Quarter: 2021Q1

REPORT INFORMATION
  Report Type: Spontaneous
  Country: CA (occurrence: CA)
  Receive Date: 20210118
  Receipt Date: 20210118
  Transmission Date: 20210419
  Serious: Yes (Hospitalization, Other)
  Sender: FDA-Public Use
  Company Number: CA-PURDUE-USA-2020-0198151

PATIENT
  Sex: Female

DRUGS (3)
  1. OXY IR [Suspect]
     Active Substance: OXYCODONE HYDROCHLORIDE
     Indication: PAIN
     Dosage: UNK UNK, Q4H
     Route: 048
  2. OXYCONTIN [Suspect]
     Active Substance: OXYCODONE HYDROCHLORIDE
     Indication: PAIN
     Dosage: UNK UNK, TID (40MG(2X20) IN THE EARLY AM, 20 OR 40 MG IN THE MID AFTERNOON, THEN 40(2X20) AT BED)
     Route: 048
     Dates: start: 200606
  3. OXYCODONE HYDROCHLORIDE. [Suspect]
     Active Substance: OXYCODONE HYDROCHLORIDE
     Indication: PAIN
     Dosage: UNKNOWN
     Route: 065

REACTIONS (4)
  - Hypersomnia [None]
  - Drug dependence [Unknown]
  - Neuralgia [Unknown]
  - Spinal operation [Unknown]
